FAERS Safety Report 10304999 (Version 2)
Quarter: 2014Q3

REPORT INFORMATION
  Report Type: Spontaneous
  Country: AU (occurrence: AU)
  Receive Date: 20140715
  Receipt Date: 20140716
  Transmission Date: 20150326
  Serious: Yes (Death)
  Sender: FDA-Public Use
  Company Number: AU-JNJFOC-20140702809

PATIENT
  Age: 71 Year
  Sex: Male

DRUGS (2)
  1. PREDNISOLONE. [Concomitant]
     Active Substance: PREDNISOLONE
     Route: 065
  2. ZYTIGA [Suspect]
     Active Substance: ABIRATERONE ACETATE
     Indication: PROSTATE CANCER METASTATIC
     Route: 048

REACTIONS (1)
  - Death [Fatal]
